FAERS Safety Report 25304844 (Version 2)
Quarter: 2025Q2

REPORT INFORMATION
  Report Type: Spontaneous
  Country: JP (occurrence: JP)
  Receive Date: 20250513
  Receipt Date: 20250605
  Transmission Date: 20250716
  Serious: Yes (Hospitalization)
  Sender: BAYER HEALTHCARE PHARMACEUTICALS INC.
  Company Number: JP-BAYER-2025A063695

PATIENT
  Age: 4 Decade
  Sex: Female

DRUGS (1)
  1. YAZ [Suspect]
     Active Substance: DROSPIRENONE\ETHINYL ESTRADIOL
     Indication: Dysmenorrhoea
     Route: 048
     Dates: end: 20250501

REACTIONS (3)
  - Fall [Not Recovered/Not Resolved]
  - Humerus fracture [Not Recovered/Not Resolved]
  - Contraindicated product administered [None]

NARRATIVE: CASE EVENT DATE: 20250503
